FAERS Safety Report 9284368 (Version 2)
Quarter: 2013Q4

REPORT INFORMATION
  Report Type: Spontaneous
  Country: US (occurrence: US)
  Receive Date: 20130510
  Receipt Date: 20131129
  Transmission Date: 20140711
  Serious: Yes (Other)
  Sender: FDA-Public Use
  Company Number: CHPA2013US007523

PATIENT
  Age: 67 Year
  Sex: Male

DRUGS (5)
  1. EXCEDRIN EXTRA STRENGTH [Suspect]
     Indication: HEADACHE
     Dosage: UNK, UNK
     Route: 048
  2. EXCEDRIN EXTRA STRENGTH [Suspect]
     Indication: PROPHYLAXIS
  3. VITAMIN D [Concomitant]
  4. ASPIRIN [Concomitant]
  5. ANTIHYPERTENSIVES [Concomitant]
     Indication: HYPERTENSION

REACTIONS (5)
  - Glucose tolerance impaired [Unknown]
  - Blood cholesterol increased [Not Recovered/Not Resolved]
  - Headache [Recovered/Resolved]
  - Off label use [Unknown]
  - Therapeutic response unexpected [Unknown]
